FAERS Safety Report 8522007-5 (Version None)
Quarter: 2012Q3

REPORT INFORMATION
  Report Type: 
  Country: None (occurrence: None)
  Receive Date: 20120719
  Receipt Date: 20120711
  Transmission Date: 20120928
  Serious: Yes (Hospitalization, Other)
  Sender: FDA-Public Use
  Company Number: GB-PFIZER INC-2012144346

PATIENT
  Age: 78 Year
  Sex: Male

DRUGS (2)
  1. PARACETAMOL [Concomitant]
     Dosage: 500 MG, 4X/DAY
     Dates: start: 20041004
  2. CELECOXIB [Suspect]
     Indication: OSTEOARTHRITIS
     Dosage: 100 MG, 2X/DAY
     Route: 048
     Dates: start: 20100812, end: 20111214

REACTIONS (2)
  - PULMONARY EOSINOPHILIA [None]
  - EPIDIDYMITIS [None]
